FAERS Safety Report 6093765-7 (Version None)
Quarter: 2009Q1

REPORT INFORMATION
  Report Type: 
  Country: None (occurrence: None)
  Receive Date: 20090219
  Receipt Date: 20081021
  Transmission Date: 20090719
  Serious: No
  Sender: FDA-Public Use
  Company Number: WAES 0810USA03938

PATIENT
  Age: 65 Year
  Sex: Female
  Weight: 115.6672 kg

DRUGS (4)
  1. JANUVIA [Suspect]
     Indication: DIABETES MELLITUS
     Dosage: 100 MG/DAILY/PO; 100 MG/DAILY/PO
     Route: 048
     Dates: start: 20061101, end: 20080601
  2. GLIMEPIRIDE [Concomitant]
  3. INSULIN [Concomitant]
  4. METFORMIN HCL [Concomitant]

REACTIONS (2)
  - WEIGHT DECREASED [None]
  - WEIGHT INCREASED [None]
